FAERS Safety Report 5881467-9 (Version None)
Quarter: 2008Q3

REPORT INFORMATION
  Report Type: 
  Country: None (occurrence: None)
  Receive Date: 20080912
  Receipt Date: 20080623
  Transmission Date: 20090109
  Serious: No
  Sender: FDA-Public Use
  Company Number: US-ABBOTT-08P-163-0460509-00

PATIENT
  Sex: Female
  Weight: 109 kg

DRUGS (14)
  1. HUMIRA [Suspect]
     Indication: RHEUMATOID ARTHRITIS
     Route: 058
     Dates: start: 20080604
  2. HUMIRA [Suspect]
     Route: 058
  3. GABAPENTIN [Concomitant]
     Indication: RHEUMATOID ARTHRITIS
     Route: 048
  4. ZOLMITRIPTAN [Concomitant]
     Indication: MIGRAINE
     Route: 048
  5. VICODIN [Concomitant]
     Indication: RHEUMATOID ARTHRITIS
     Dosage: 10/325MG UP TO 3-4 TIMES DAILY UP TO 40/1300MG DAILY
     Route: 048
  6. CYCLOBENZAPRINE HCL [Concomitant]
     Indication: RHEUMATOID ARTHRITIS
     Route: 048
  7. FEXOFENADINE [Concomitant]
     Indication: SEASONAL ALLERGY
     Route: 048
  8. FLUTICASONE PROPIONATE [Concomitant]
     Indication: SEASONAL ALLERGY
  9. PSUEDOEPEDPHRINE [Concomitant]
     Indication: SEASONAL ALLERGY
     Route: 048
     Dates: start: 20080401
  10. CELECOXIB [Concomitant]
     Indication: RHEUMATOID ARTHRITIS
     Route: 048
     Dates: start: 20080401
  11. HYDROXYCHLOROQUINE [Concomitant]
     Indication: RHEUMATOID ARTHRITIS
     Route: 048
     Dates: start: 20061201
  12. LEVOTHYROXINE SODIUM [Concomitant]
     Indication: HYPOTHYROIDISM
     Route: 048
  13. ESCITALOPRAM OXALATE [Concomitant]
     Indication: DEPRESSION
     Route: 048
  14. CAPPRA [Concomitant]
     Indication: MIGRAINE
     Route: 048

REACTIONS (1)
  - ACCIDENTAL EXPOSURE [None]
